FAERS Safety Report 20513733 (Version 2)
Quarter: 2022Q3

REPORT INFORMATION
  Report Type: Spontaneous
  Country: US (occurrence: US)
  Receive Date: 20220224
  Receipt Date: 20220816
  Transmission Date: 20221027
  Serious: Yes (Hospitalization)
  Sender: FDA-Public Use
  Company Number: US-AMNEAL PHARMACEUTICALS-2021-AMRX-01769

PATIENT
  Sex: Female
  Weight: 90 kg

DRUGS (10)
  1. RYTARY [Suspect]
     Active Substance: CARBIDOPA\LEVODOPA
     Indication: Parkinson^s disease
     Dosage: 36.25/145 MG,1 CAPSULES, 4X/DAY (6AM,10AM,2PM,6PM)
     Route: 048
     Dates: start: 20210508, end: 20210524
  2. RYTARY [Suspect]
     Active Substance: CARBIDOPA\LEVODOPA
     Dosage: 23.75/95 MG,2 CAPSULES, 4X/DAY (6AM,10AM,2PM, 6PM)
     Route: 048
     Dates: start: 20210524, end: 2021
  3. RYTARY [Suspect]
     Active Substance: CARBIDOPA\LEVODOPA
     Dosage: 23.75MG/95MG 3 CAPSULES AT 6AM THEN 2 CAPSULES AT 10AM, 2PM AND 6PM
     Route: 048
     Dates: start: 2021, end: 2021
  4. RYTARY [Suspect]
     Active Substance: CARBIDOPA\LEVODOPA
     Dosage: 23.75/95MG 2 CAPSULES AND 36.25/145MG 1 CAPSULE 4 TIMES
     Route: 048
     Dates: start: 2021, end: 2021
  5. RYTARY [Suspect]
     Active Substance: CARBIDOPA\LEVODOPA
     Dosage: 23.75/95MG AND 36.25/145MG BOTH 1 CAPSULE 4 TIMES
     Route: 048
     Dates: start: 20210609, end: 2021
  6. RYTARY [Suspect]
     Active Substance: CARBIDOPA\LEVODOPA
     Dosage: 23.75/95MG 3 CAPSULES, 4 /DAY
     Route: 048
     Dates: start: 20210702, end: 20210708
  7. RYTARY [Suspect]
     Active Substance: CARBIDOPA\LEVODOPA
     Dosage: 23.75-95 MG 3 CAPSULES, 4 /DAY
     Route: 048
  8. AMANTADINE [Concomitant]
     Active Substance: AMANTADINE
     Indication: Product used for unknown indication
     Dosage: 100 MILLIGRAM, 6AM,10AM AND 2PM
     Route: 065
  9. CELEXA [Concomitant]
     Active Substance: CITALOPRAM HYDROBROMIDE
     Indication: Product used for unknown indication
     Dosage: 20 MILLIGRAM, DAILY AT NIGHT
     Route: 065
  10. BACLOFEN [Concomitant]
     Active Substance: BACLOFEN
     Indication: Muscle relaxant therapy
     Dosage: UNK
     Route: 065

REACTIONS (8)
  - Adverse event [Unknown]
  - Therapeutic product effect decreased [Unknown]
  - Drug ineffective [Unknown]
  - Amnesia [Unknown]
  - Tremor [Recovered/Resolved]
  - Dyskinesia [Unknown]
  - Confusional state [Unknown]
  - Therapy cessation [Unknown]

NARRATIVE: CASE EVENT DATE: 20210101
